FAERS Safety Report 9404575 (Version 1)
Quarter: 2013Q3

REPORT INFORMATION
  Report Type: Spontaneous
  Country: US (occurrence: None)
  Receive Date: 20130716
  Receipt Date: 20130716
  Transmission Date: 20140515
  Serious: Yes (Hospitalization)
  Sender: FDA-Public Use
  Company Number: None

PATIENT
  Age: 58 Year
  Sex: Male
  Weight: 68.1 kg

DRUGS (2)
  1. METHADONE [Suspect]
     Indication: PAIN
     Route: 048
     Dates: start: 20130418, end: 20130617
  2. OXYCODONE [Suspect]
     Indication: PAIN
     Route: 048
     Dates: start: 20130520, end: 20130617

REACTIONS (2)
  - Constipation [None]
  - Abdominal pain [None]
